FAERS Safety Report 16442205 (Version 2)
Quarter: 2020Q2

REPORT INFORMATION
  Report Type: Report from Study
  Country: None (occurrence: US)
  Receive Date: 20190617
  Receipt Date: 20200604
  Transmission Date: 20200713
  Serious: No
  Sender: FDA-Public Use
  Company Number: US-US WORLDMEDS, LLC-USW201902-000264

PATIENT
  Sex: Female

DRUGS (6)
  1. APOKYN [Suspect]
     Active Substance: APOMORPHINE HYDROCHLORIDE
     Indication: PARKINSON^S DISEASE
     Route: 058
     Dates: start: 201501
  2. MIRAPEX [Concomitant]
     Active Substance: PRAMIPEXOLE DIHYDROCHLORIDE
  3. CABERGOLINE. [Concomitant]
     Active Substance: CABERGOLINE
  4. APOKYN [Suspect]
     Active Substance: APOMORPHINE HYDROCHLORIDE
     Route: 058
     Dates: start: 20150101
  5. AZILECT [Concomitant]
     Active Substance: RASAGILINE MESYLATE
  6. AMANTADINE. [Concomitant]
     Active Substance: AMANTADINE HYDROCHLORIDE
     Indication: TARDIVE DYSKINESIA

REACTIONS (6)
  - On and off phenomenon [Recovered/Resolved]
  - Fall [Recovering/Resolving]
  - Dyskinesia [Unknown]
  - Back pain [Recovering/Resolving]
  - Hyperhidrosis [Unknown]
  - Malaise [Not Recovered/Not Resolved]
